FAERS Safety Report 8717524 (Version 2)
Quarter: 2012Q4

REPORT INFORMATION
  Report Type: 
  Country: JP (occurrence: JP)
  Receive Date: 20120810
  Receipt Date: 20121221
  Transmission Date: 20130627
  Serious: Yes (Hospitalization)
  Sender: FDA-Public Use
  Company Number: JP-AMGEN-JPNCT2011018384

PATIENT
  Age: 68 Year
  Sex: Male
  Weight: 46 kg

DRUGS (4)
  1. PANITUMUMAB [Suspect]
     Indication: COLORECTAL CANCER
     Dosage: 290 mg, q2wk
     Route: 041
     Dates: start: 20110210, end: 20110223
  2. TOPOTECIN [Suspect]
     Indication: COLORECTAL CANCER
     Dosage: 170 mg, q2wk
     Route: 041
     Dates: start: 20101228, end: 20110223
  3. FLUOROURACIL [Concomitant]
     Indication: COLORECTAL CANCER
     Dosage: 2270 mg, q2wk
     Route: 041
     Dates: start: 20101228, end: 20110223
  4. CALCIUM LEVOFOLINATE [Concomitant]
     Indication: COLORECTAL CANCER
     Dosage: 290 mg, q2wk
     Route: 041
     Dates: start: 20101228, end: 20110223

REACTIONS (1)
  - Interstitial lung disease [Recovering/Resolving]
